FAERS Safety Report 5795840-0 (Version None)
Quarter: 2008Q3

REPORT INFORMATION
  Report Type: 
  Country: None (occurrence: None)
  Receive Date: 20080701
  Receipt Date: 20080616
  Transmission Date: 20090109
  Serious: Yes (Other)
  Sender: FDA-Public Use
  Company Number: US-BAYER-200820102GPV

PATIENT
  Age: 47 Year
  Sex: Male

DRUGS (7)
  1. ALEMTUZUMAB [Suspect]
     Indication: IMMUNOSUPPRESSION
  2. RITUXIMAB [Suspect]
     Indication: IMMUNOSUPPRESSION
  3. PREDNISOLONE [Suspect]
     Indication: IMMUNOSUPPRESSION
  4. TACROLIMUS [Suspect]
     Indication: IMMUNOSUPPRESSION
  5. MYCOPHENOLATE MOFETIL [Suspect]
     Indication: IMMUNOSUPPRESSION
  6. CASPOFUNGIN [Concomitant]
     Indication: ANTIFUNGAL PROPHYLAXIS
  7. AMPHOTERICIN B [Concomitant]
     Indication: ANTIFUNGAL PROPHYLAXIS

REACTIONS (9)
  - ERYSIPELOID [None]
  - NEUTROPENIA [None]
  - PNEUMONIA FUNGAL [None]
  - RENAL FAILURE [None]
  - SURGICAL PROCEDURE REPEATED [None]
  - TRANSPLANT [None]
  - TRANSPLANT REJECTION [None]
  - URINARY TRACT INFECTION [None]
  - ZYGOMYCOSIS [None]
